FAERS Safety Report 9169233 (Version 1)
Quarter: 2013Q1

REPORT INFORMATION
  Report Type: Report from Study
  Country: FR (occurrence: FR)
  Receive Date: 20130318
  Receipt Date: 20130318
  Transmission Date: 20140127
  Serious: Yes (Hospitalization, Other)
  Sender: FDA-Public Use
  Company Number: FR-ROCHE-1199829

PATIENT
  Age: 64 Year
  Sex: Female

DRUGS (18)
  1. ROACTEMRA [Suspect]
     Indication: RHEUMATOID ARTHRITIS
     Route: 041
     Dates: start: 20110121, end: 20110530
  2. ROACTEMRA [Suspect]
     Route: 041
     Dates: start: 20110223
  3. ROACTEMRA [Suspect]
     Route: 041
     Dates: start: 20110323
  4. ROACTEMRA [Suspect]
     Route: 041
     Dates: start: 20110424
  5. ROACTEMRA [Suspect]
     Route: 041
     Dates: start: 20110530, end: 20110701
  6. RITUXIMAB [Suspect]
     Indication: RHEUMATOID ARTHRITIS
     Route: 065
  7. CORTANCYL [Concomitant]
     Route: 065
  8. MOPRAL (FRANCE) [Concomitant]
     Route: 065
  9. TENORMINE [Concomitant]
     Route: 065
  10. AMLOR [Concomitant]
     Route: 065
  11. METFORMIN [Concomitant]
     Route: 065
  12. LYSANXIA [Concomitant]
     Dosage: 1/2 DF DAILY
     Route: 065
  13. DANOL [Concomitant]
     Route: 065
  14. ATENOLOL [Concomitant]
     Route: 065
  15. GLUCOPHAGE [Concomitant]
     Route: 065
  16. BIPROLOL [Concomitant]
  17. HEMI-DAONIL [Concomitant]
     Route: 065
  18. BI-PROFENID [Concomitant]
     Route: 065

REACTIONS (4)
  - Hiatus hernia [Recovered/Resolved]
  - Anaemia [Recovered/Resolved]
  - Rheumatoid arthritis [Recovered/Resolved]
  - Leukopenia [Recovered/Resolved]
